FAERS Safety Report 11044744 (Version 1)
Quarter: 2015Q2

REPORT INFORMATION
  Report Type: Spontaneous
  Country: US (occurrence: None)
  Receive Date: 20150415
  Receipt Date: 20150415
  Transmission Date: 20150821
  Serious: Yes (Hospitalization)
  Sender: FDA-Public Use
  Company Number: ADR-2015212060

PATIENT
  Age: 67 Year
  Sex: Female
  Weight: 49.9 kg

DRUGS (5)
  1. LORAZEPAM. [Concomitant]
     Active Substance: LORAZEPAM
  2. ATENOLOL. [Concomitant]
     Active Substance: ATENOLOL
  3. NSAIDS [Concomitant]
     Active Substance: UNSPECIFIED INGREDIENT
  4. DEXILANT [Concomitant]
     Active Substance: DEXLANSOPRAZOLE
  5. SERTRALINE [Suspect]
     Active Substance: SERTRALINE HYDROCHLORIDE
     Indication: ANXIETY
     Dosage: 25 MG, OD
     Route: 048
     Dates: start: 201412

REACTIONS (3)
  - Nausea [None]
  - Hypertension [None]
  - Influenza [None]
